FAERS Safety Report 7278114-0 (Version None)
Quarter: 2011Q1

REPORT INFORMATION
  Report Type: 
  Country: None (occurrence: None)
  Receive Date: 20110207
  Receipt Date: 20110201
  Transmission Date: 20110831
  Serious: Yes (Hospitalization)
  Sender: FDA-Public Use
  Company Number: A0731247A

PATIENT
  Age: 72 Year
  Sex: Female

DRUGS (1)
  1. AVANDIA [Suspect]
     Dosage: 2MG TWICE PER DAY
     Route: 048
     Dates: start: 20050101, end: 20060429

REACTIONS (7)
  - ATRIAL FIBRILLATION [None]
  - CARDIAC FAILURE CONGESTIVE [None]
  - BLINDNESS [None]
  - CORONARY ARTERIAL STENT INSERTION [None]
  - CARDIAC ASSISTANCE DEVICE USER [None]
  - HYPERTENSION [None]
  - CEREBROVASCULAR ACCIDENT [None]
